FAERS Safety Report 4533912-9 (Version None)
Quarter: 2004Q4

REPORT INFORMATION
  Report Type: 
  Country: None (occurrence: None)
  Receive Date: 20041210
  Receipt Date: 20031219
  Transmission Date: 20050328
  Serious: Yes (Other)
  Sender: FDA-Public Use
  Company Number: A03200303011

PATIENT
  Age: 50 Year
  Sex: Female

DRUGS (2)
  1. ELOXATIN [Suspect]
     Indication: COLON CANCER METASTATIC
     Dosage: 100 MG/M2 OTHER - INTRAVENOUS NOS
     Route: 042
  2. CAPECITABINE [Concomitant]

REACTIONS (9)
  - CHILLS [None]
  - FLUSHING [None]
  - HYPERSENSITIVITY [None]
  - HYPOTENSION [None]
  - OXYGEN SATURATION DECREASED [None]
  - PALPITATIONS [None]
  - PRURITUS [None]
  - RASH MACULAR [None]
  - WHEEZING [None]
